FAERS Safety Report 6956814-7 (Version None)
Quarter: 2010Q3

REPORT INFORMATION
  Report Type: 
  Country: None (occurrence: None)
  Receive Date: 20100826
  Receipt Date: 20100813
  Transmission Date: 20110219
  Serious: Yes (Hospitalization)
  Sender: FDA-Public Use
  Company Number: AUR-APL-2010-02055

PATIENT
  Age: 76 Year
  Sex: Female

DRUGS (7)
  1. METFORMIN [Suspect]
     Dosage: 1DF, DAILY, ORAL
     Route: 048
  2. TENORMIN [Suspect]
     Dosage: 100 MG, DAILY, ORAL
     Route: 048
  3. LIPANTHYL [Suspect]
     Dosage: 160 MG, DAILY, ORAL
     Route: 048
  4. NIDREL [Suspect]
     Dosage: 20 MG, DAILY, ORAL
  5. ALLOPURINOL [Suspect]
     Dosage: 200 MG, DAILY, ORAL
     Route: 048
  6. AMAREL [Suspect]
     Dosage: 1DF, DAILY, ORAL
     Route: 048
  7. KARDEGIC [Suspect]
     Dosage: 75 MG, DAILY, ORAL
     Route: 048

REACTIONS (7)
  - ASCITES [None]
  - CHOLESTASIS [None]
  - CYTOLYTIC HEPATITIS [None]
  - HEPATIC CIRRHOSIS [None]
  - HEPATIC FAILURE [None]
  - LIVER DISORDER [None]
  - OEDEMA [None]
